FAERS Safety Report 5629929-3 (Version None)
Quarter: 2008Q1

REPORT INFORMATION
  Report Type: 
  Country: None (occurrence: None)
  Receive Date: 20080218
  Receipt Date: 20080204
  Transmission Date: 20080703
  Serious: Yes (Other)
  Sender: FDA-Public Use
  Company Number: GR-ROCHE-545748

PATIENT
  Sex: Female

DRUGS (2)
  1. XENICAL [Suspect]
     Indication: WEIGHT CONTROL
     Dosage: OTHER INDICATION: CONSTIPATION.
     Route: 065
     Dates: start: 20080203
  2. XENICAL [Suspect]
     Route: 065
     Dates: start: 20060101

REACTIONS (2)
  - ABDOMINAL PAIN LOWER [None]
  - RECTAL HAEMORRHAGE [None]
